FAERS Safety Report 23314604 (Version 1)
Quarter: 2023Q4

REPORT INFORMATION
  Report Type: Spontaneous
  Country: IT (occurrence: IT)
  Receive Date: 20231219
  Receipt Date: 20231219
  Transmission Date: 20240110
  Serious: Yes (Hospitalization)
  Sender: FDA-Public Use
  Company Number: IT-SUN PHARMACEUTICAL INDUSTRIES LTD-2023RR-423461

PATIENT
  Age: 25 Year
  Sex: Female

DRUGS (3)
  1. LORAZEPAM [Suspect]
     Active Substance: LORAZEPAM
     Indication: Intentional overdose
     Dosage: 80 DOSAGE FORM
     Route: 048
     Dates: start: 20230802, end: 20230802
  2. GABAPENTIN [Suspect]
     Active Substance: GABAPENTIN
     Indication: Intentional overdose
     Dosage: 4.5 GRAM
     Route: 048
     Dates: start: 20230802, end: 20230802
  3. ABILIFY [Suspect]
     Active Substance: ARIPIPRAZOLE
     Indication: Intentional overdose
     Dosage: 56 DOSAGE FORM
     Route: 048
     Dates: start: 20230802, end: 20230802

REACTIONS (3)
  - Sopor [Recovering/Resolving]
  - Somnolence [Recovering/Resolving]
  - Intentional overdose [Recovering/Resolving]

NARRATIVE: CASE EVENT DATE: 20230802
